FAERS Safety Report 5215025-6 (Version None)
Quarter: 2007Q1

REPORT INFORMATION
  Report Type: 
  Country: None (occurrence: None)
  Receive Date: 20070122
  Receipt Date: 20070110
  Transmission Date: 20070707
  Serious: Yes (Hospitalization)
  Sender: FDA-Public Use
  Company Number: FR-PFIZER INC-2006092163

PATIENT
  Age: 24 Month
  Sex: Male
  Weight: 20 kg

DRUGS (17)
  1. HYDROXYZINE HYDROCHLORIDE (TABLET) [Suspect]
     Route: 048
     Dates: start: 20060509, end: 20060515
  2. CARBOPLATIN [Suspect]
     Indication: NEUROBLASTOMA
     Route: 042
     Dates: start: 20060517, end: 20060517
  3. ETOPOSIDE [Suspect]
     Indication: NEUROBLASTOMA
     Dosage: DAILY DOSE:130MG
     Route: 042
     Dates: start: 20060517, end: 20060518
  4. VINCRISTINE SULFATE [Suspect]
     Indication: NEUROBLASTOMA
     Route: 042
     Dates: start: 20060517, end: 20060517
  5. METOPIMAZINE [Suspect]
     Route: 042
     Dates: start: 20060517, end: 20060522
  6. METOPIMAZINE [Suspect]
  7. LENOGRASTIM [Suspect]
     Dates: start: 20060520, end: 20060522
  8. ACETAMINOPHEN [Suspect]
     Dosage: DAILY DOSE:1200MG
     Route: 042
     Dates: start: 20060507, end: 20060522
  9. BACTRIM [Suspect]
     Route: 048
  10. LUGOL CAP [Suspect]
     Route: 048
     Dates: start: 20060509, end: 20060518
  11. CODEINE SUL TAB [Suspect]
     Route: 048
     Dates: start: 20060507, end: 20060520
  12. NALBUPHINE HCL [Suspect]
  13. VANCOMYCIN [Suspect]
     Route: 042
  14. TARGOCID [Suspect]
     Dates: start: 20060527, end: 20060529
  15. FORTUM [Suspect]
  16. ONDANSETRON HCL [Suspect]
     Route: 042
     Dates: start: 20060517, end: 20060519
  17. IBUPROFEN [Suspect]
     Route: 048
     Dates: start: 20060504, end: 20060505

REACTIONS (6)
  - ALANINE AMINOTRANSFERASE INCREASED [None]
  - HYPOKALAEMIA [None]
  - OVERDOSE [None]
  - RENAL FAILURE ACUTE [None]
  - RENAL TUBULAR NECROSIS [None]
  - TRANSAMINASES INCREASED [None]
